FAERS Safety Report 7548635-1 (Version None)
Quarter: 2011Q2

REPORT INFORMATION
  Report Type: 
  Country: None (occurrence: None)
  Receive Date: 20110615
  Receipt Date: 20110531
  Transmission Date: 20111010
  Serious: Yes (Hospitalization)
  Sender: FDA-Public Use
  Company Number: US-JNJFOC-20110602110

PATIENT
  Sex: Female
  Weight: 46.4 kg

DRUGS (6)
  1. MESALAMINE [Concomitant]
  2. MULTI-VITAMINS [Concomitant]
  3. REMICADE [Suspect]
     Indication: INFLAMMATORY BOWEL DISEASE
     Route: 042
     Dates: start: 20080512
  4. CALCIUM AND VITAMIN D [Concomitant]
  5. REMICADE [Suspect]
     Route: 042
     Dates: start: 20110419
  6. MIRALAX [Concomitant]

REACTIONS (1)
  - ARTHRALGIA [None]
